FAERS Safety Report 4622669-9 (Version None)
Quarter: 2005Q1

REPORT INFORMATION
  Report Type: 
  Country: None (occurrence: None)
  Receive Date: 20050330
  Receipt Date: 20041223
  Transmission Date: 20050727
  Serious: No
  Sender: FDA-Public Use
  Company Number: US-BRISTOL-MYERS SQUIBB COMPANY-12806568

PATIENT

DRUGS (2)
  1. REYATAZ [Suspect]
  2. RITONAVIR [Suspect]

REACTIONS (2)
  - NAUSEA [None]
  - VOMITING [None]
